FAERS Safety Report 6201890-2 (Version None)
Quarter: 2009Q2

REPORT INFORMATION
  Report Type: 
  Country: None (occurrence: None)
  Receive Date: 20090526
  Receipt Date: 20090514
  Transmission Date: 20091009
  Serious: Yes (Disabling, Other)
  Sender: FDA-Public Use
  Company Number: US-PFIZER INC-2005048889

PATIENT
  Sex: Female
  Weight: 63 kg

DRUGS (13)
  1. PROVERA [Suspect]
     Indication: HORMONE REPLACEMENT THERAPY
     Dosage: UNK
     Route: 048
     Dates: start: 19860301, end: 19980601
  2. PROVERA [Suspect]
     Dosage: 10 MG, UNK
     Route: 048
     Dates: start: 19901101, end: 19910201
  3. PROVERA [Suspect]
     Dosage: 5 MG, UNK
     Dates: start: 19910201, end: 19910501
  4. PROVERA [Suspect]
     Dosage: UNK
     Dates: start: 19910601, end: 20010701
  5. OGEN [Suspect]
     Indication: HORMONE REPLACEMENT THERAPY
     Dosage: UNK
     Route: 048
     Dates: start: 19901101, end: 19981201
  6. OGEN [Suspect]
     Dosage: UNK
     Dates: start: 19911101, end: 19981201
  7. MEDROXYPROGESTERONE ACETATE [Suspect]
     Indication: HORMONE REPLACEMENT THERAPY
     Route: 065
     Dates: start: 19860101, end: 20010701
  8. PREMARIN [Suspect]
     Indication: HORMONE REPLACEMENT THERAPY
     Dosage: UNK
     Route: 065
     Dates: start: 19880101, end: 19880601
  9. AYGESTIN [Suspect]
     Indication: HORMONE REPLACEMENT THERAPY
     Dosage: 5 MG, UNK
     Route: 065
  10. ESTROPIPATE [Suspect]
     Indication: HORMONE REPLACEMENT THERAPY
     Dosage: 75 MG, UNK
     Dates: start: 20000201, end: 20010701
  11. SYNTHROID [Concomitant]
     Indication: THYROID DISORDER
     Dosage: UNK
     Dates: start: 19670101
  12. HYDROXYZINE HYDROCHLORIDE [Concomitant]
     Indication: URTICARIA
     Dosage: UNK
     Dates: start: 20000301
  13. VALTREX [Concomitant]
     Indication: HERPES VIRUS INFECTION
     Dosage: UNK
     Dates: start: 20000301, end: 20020101

REACTIONS (1)
  - BREAST CANCER FEMALE [None]
